FAERS Safety Report 14511586 (Version 2)
Quarter: 2019Q1

REPORT INFORMATION
  Report Type: Spontaneous
  Country: US (occurrence: US)
  Receive Date: 20180209
  Receipt Date: 20190124
  Transmission Date: 20190417
  Serious: No
  Sender: FDA-Public Use
  Company Number: US-ENDO PHARMACEUTICALS INC-2017-004770

PATIENT
  Age: 66 Year
  Sex: Male
  Weight: 117.91 kg

DRUGS (21)
  1. TESTOSTERONE. [Suspect]
     Active Substance: TESTOSTERONE
     Dosage: 10 MG, TWO PUMPS DAILY
     Route: 061
     Dates: start: 20170906, end: 2017
  2. TRAMADOL. [Concomitant]
     Active Substance: TRAMADOL
     Indication: GASTROOESOPHAGEAL REFLUX DISEASE
  3. HYDROXYCHLOROQUINE [Concomitant]
     Active Substance: HYDROXYCHLOROQUINE
     Indication: AUTOIMMUNE DISORDER
  4. MULTIVITAMIN                       /07504101/ [Concomitant]
     Active Substance: VITAMINS
     Indication: PRODUCT USED FOR UNKNOWN INDICATION
  5. OMEPRAZOLE                         /00661202/ [Concomitant]
     Active Substance: OMEPRAZOLE SODIUM
     Indication: PRODUCT USED FOR UNKNOWN INDICATION
  6. TRAMADOL                           /00599202/ [Concomitant]
     Active Substance: TRAMADOL
     Indication: PAIN
  7. CLONAZEPAM. [Concomitant]
     Active Substance: CLONAZEPAM
     Indication: MUSCLE SPASMS
     Dosage: UNK UNKNOWN, UNKNOWN
     Route: 065
     Dates: start: 2007
  8. TRAMADOL. [Concomitant]
     Active Substance: TRAMADOL
     Indication: BREAKTHROUGH PAIN
  9. GABAPENTIN. [Concomitant]
     Active Substance: GABAPENTIN
     Indication: PAIN
  10. NEXIUM [Concomitant]
     Active Substance: ESOMEPRAZOLE MAGNESIUM
     Indication: GASTROOESOPHAGEAL REFLUX DISEASE
  11. VITAMIN C [Concomitant]
     Active Substance: ASCORBIC ACID
     Indication: PRODUCT USED FOR UNKNOWN INDICATION
  12. TESTOSTERONE. [Suspect]
     Active Substance: TESTOSTERONE
     Indication: BLOOD TESTOSTERONE DECREASED
     Dosage: 10 MG, FOUR PUMPS DAILY
     Route: 061
     Dates: start: 20170826, end: 201709
  13. CLONAZEPAM. [Concomitant]
     Active Substance: CLONAZEPAM
     Indication: BACK PAIN
  14. PROBIOTIC                          /06395501/ [Concomitant]
     Active Substance: BIFIDOBACTERIUM ANIMALIS LACTIS
     Indication: PRODUCT USED FOR UNKNOWN INDICATION
  15. SYNTHROID [Concomitant]
     Active Substance: LEVOTHYROXINE SODIUM
     Indication: PRODUCT USED FOR UNKNOWN INDICATION
  16. TESTOSTERONE. [Suspect]
     Active Substance: TESTOSTERONE
     Dosage: 10 MG,  ONE PUMP DAILY
     Route: 061
     Dates: start: 2017, end: 201711
  17. TESTOSTERONE. [Suspect]
     Active Substance: TESTOSTERONE
     Dosage: 10 MG, TWO PUMPS DAILY
     Route: 061
     Dates: start: 201711
  18. VITAMIN D3 [Concomitant]
     Active Substance: CHOLECALCIFEROL
     Indication: PRODUCT USED FOR UNKNOWN INDICATION
  19. MAGNESIUM CITRATE. [Concomitant]
     Active Substance: MAGNESIUM CITRATE
     Indication: BACK PAIN
     Dosage: UNK
  20. CITRICAL                           /00751501/ [Concomitant]
     Active Substance: CALCIUM
     Indication: PRODUCT USED FOR UNKNOWN INDICATION
  21. TRAMADOL                           /00599202/ [Concomitant]
     Active Substance: TRAMADOL
     Indication: GASTROOESOPHAGEAL REFLUX DISEASE

REACTIONS (14)
  - Oropharyngeal pain [Not Recovered/Not Resolved]
  - Back pain [Recovered/Resolved]
  - Gastrooesophageal reflux disease [Not Recovered/Not Resolved]
  - Insomnia [Recovered/Resolved]
  - Product administered at inappropriate site [Unknown]
  - Therapeutic response unexpected [Not Recovered/Not Resolved]
  - Unevaluable event [Unknown]
  - Pain [Not Recovered/Not Resolved]
  - Feeling abnormal [Recovered/Resolved]
  - Peripheral swelling [Unknown]
  - Drug hypersensitivity [Unknown]
  - Arthralgia [Unknown]
  - Blood testosterone abnormal [Unknown]
  - Condition aggravated [Not Recovered/Not Resolved]

NARRATIVE: CASE EVENT DATE: 201708
